FAERS Safety Report 17165413 (Version 1)
Quarter: 2019Q4

REPORT INFORMATION
  Report Type: Spontaneous
  Country: FR (occurrence: FR)
  Receive Date: 20191217
  Receipt Date: 20191217
  Transmission Date: 20200122
  Serious: Yes (Hospitalization)
  Sender: FDA-Public Use
  Company Number: FR-PFIZER INC-2019538723

PATIENT
  Age: 2 Year
  Sex: Female
  Weight: 16 kg

DRUGS (7)
  1. ACLOTINE [Concomitant]
     Active Substance: ANTITHROMBIN III HUMAN
     Indication: ACQUIRED ANTITHROMBIN III DEFICIENCY
     Dosage: 500 IU, 1X/DAY
     Route: 042
     Dates: start: 20191018, end: 20191018
  2. VINCRISTINE SULFATE. [Interacting]
     Active Substance: VINCRISTINE SULFATE
     Indication: ACUTE LYMPHOCYTIC LEUKAEMIA
     Dosage: 0.95 MG, 1X/DAY
     Route: 042
     Dates: start: 20191014, end: 20191014
  3. XALUPRINE [Interacting]
     Active Substance: MERCAPTOPURINE
     Indication: ACUTE LYMPHOCYTIC LEUKAEMIA
     Dosage: 31 MG, 1X/DAY
     Route: 048
     Dates: start: 20191007
  4. METHOTREXATE SODIUM. [Suspect]
     Active Substance: METHOTREXATE SODIUM
     Indication: ACUTE LYMPHOCYTIC LEUKAEMIA
     Dosage: 16 MG, 1X/DAY
     Route: 048
     Dates: start: 20191014, end: 2019
  5. BACTRIM [Concomitant]
     Active Substance: SULFAMETHOXAZOLE\TRIMETHOPRIM
     Indication: ANTIBIOTIC PROPHYLAXIS
     Dosage: 1200 MG, WEEKLY
     Route: 048
  6. ASPARAGINASE [Interacting]
     Active Substance: ASPARAGINASE
     Indication: ACUTE LYMPHOCYTIC LEUKAEMIA
     Dosage: 1550 IU, 1X/DAY
     Route: 042
     Dates: start: 20191014, end: 20191014
  7. SECTRAL [Concomitant]
     Active Substance: ACEBUTOLOL HYDROCHLORIDE
     Dosage: 100 MG, 1X/DAY
     Route: 048
     Dates: end: 20191104

REACTIONS (5)
  - Anaemia [Not Recovered/Not Resolved]
  - Arthritis bacterial [Recovered/Resolved]
  - Neutropenia [Not Recovered/Not Resolved]
  - Thrombocytopenia [Recovered/Resolved]
  - Drug interaction [Recovered/Resolved]

NARRATIVE: CASE EVENT DATE: 20191018
